FAERS Safety Report 24195514 (Version 1)
Quarter: 2024Q3

REPORT INFORMATION
  Report Type: Spontaneous
  Country: US (occurrence: US)
  Receive Date: 20240809
  Receipt Date: 20240809
  Transmission Date: 20241017
  Serious: No
  Sender: IMPEL NEUROPHARMA
  Company Number: US-IMPEL PHARMACEUTICALS, LLC-2024-SPO-TR-0433

PATIENT

DRUGS (1)
  1. TRUDHESA [Suspect]
     Active Substance: DIHYDROERGOTAMINE MESYLATE
     Indication: Migraine
     Route: 045

REACTIONS (3)
  - Nasal discomfort [Unknown]
  - Throat irritation [Unknown]
  - Drug ineffective [Unknown]
